FAERS Safety Report 4448962-0 (Version None)
Quarter: 2004Q3

REPORT INFORMATION
  Report Type: 
  Country: None (occurrence: None)
  Receive Date: 20040909
  Receipt Date: 20040823
  Transmission Date: 20050211
  Serious: Yes (Other)
  Sender: FDA-Public Use
  Company Number: USA040876242

PATIENT
  Age: 57 Year
  Sex: Female

DRUGS (6)
  1. EVISTA [Suspect]
     Indication: OSTEOPOROSIS
     Dates: end: 20040813
  2. ALEVE [Concomitant]
  3. CALCIUM [Concomitant]
  4. MULTIVITAMIN [Concomitant]
  5. ZOMIG [Concomitant]
  6. TYLENOL [Concomitant]

REACTIONS (4)
  - ARTERIOGRAM ABNORMAL [None]
  - POOR VENOUS ACCESS [None]
  - SKIN DISCOLOURATION [None]
  - VASCULITIS [None]
